FAERS Safety Report 9157402 (Version 1)
Quarter: 2013Q1

REPORT INFORMATION
  Report Type: Spontaneous
  Country: US (occurrence: None)
  Receive Date: 20130204
  Receipt Date: 20130204
  Transmission Date: 20140127
  Serious: Yes (Other)
  Sender: FDA-Public Use
  Company Number: 2013/015

PATIENT
  Age: 66 Year
  Sex: Male

DRUGS (3)
  1. AMLODIPINE (NO PREF. NAME) 5 MG [Suspect]
     Indication: HYPERTENSION
  2. ATENOLOL (NO. PREF. NAME) [Concomitant]
  3. ENALAPRIL (NO. PREF. NAME) [Concomitant]

REACTIONS (2)
  - Eczema [None]
  - Lymphocyte morphology abnormal [None]
